FAERS Safety Report 8458230 (Version 25)
Quarter: 2014Q1

REPORT INFORMATION
  Report Type: Report from Study
  Country: CA (occurrence: CA)
  Receive Date: 20120314
  Receipt Date: 20140322
  Transmission Date: 20141002
  Serious: Yes (Death, Other)
  Sender: FDA-Public Use
  Company Number: PHHY2012CA018113

PATIENT
  Age: 67 Year
  Sex: Female

DRUGS (3)
  1. ZOMETA [Suspect]
     Indication: BREAST CANCER
     Dosage: 4 MG, EVERY 4 WEEKS
     Route: 042
     Dates: start: 20120227
  2. ZOMETA [Suspect]
     Indication: METASTASES TO BONE
     Dosage: 4 MG, ONCE A MONTH
     Route: 042
  3. TAMOXIFEN [Concomitant]
     Dosage: UNK UKN, UNK

REACTIONS (21)
  - Death [Fatal]
  - Pulmonary mass [Unknown]
  - Pleural effusion [Unknown]
  - Arthritis [Unknown]
  - Arthralgia [Recovering/Resolving]
  - Syncope [Unknown]
  - Blood pressure systolic increased [Unknown]
  - Blood pressure diastolic decreased [Unknown]
  - Vision blurred [Unknown]
  - Gingival pain [Unknown]
  - Gingivitis [Recovering/Resolving]
  - Nasopharyngitis [Recovered/Resolved]
  - Urine output increased [Unknown]
  - Pain [Unknown]
  - Myalgia [Recovering/Resolving]
  - Fatigue [Unknown]
  - Pyrexia [Unknown]
  - Cough [Unknown]
  - Body temperature increased [Unknown]
  - Renal impairment [Unknown]
  - Pain in jaw [Recovered/Resolved]
